FAERS Safety Report 6919133-0 (Version None)
Quarter: 2010Q3

REPORT INFORMATION
  Report Type: 
  Country: None (occurrence: None)
  Receive Date: 20100727
  Receipt Date: 20100713
  Transmission Date: 20110219
  Serious: No
  Sender: FDA-Public Use
  Company Number: 2010-00525

PATIENT
  Age: 65 Year
  Sex: Female
  Weight: 72.5755 kg

DRUGS (20)
  1. ZICAM COLD REMEDY RAPIDMELTS [Suspect]
     Dosage: QID X 3-4 DAYS
     Dates: start: 20080101
  2. XOPENEX [Concomitant]
  3. ADVAIR DISKUS 100/50 [Concomitant]
  4. SYMVASTATIN [Concomitant]
  5. CELEBREX [Concomitant]
  6. LITHIUM [Concomitant]
  7. PRETIQ [Concomitant]
  8. RISPERDAL [Concomitant]
  9. GABAPENTIN [Concomitant]
  10. PROPRANOLOL [Concomitant]
  11. TEMAZEPAM [Concomitant]
  12. TRAZODONE HCL [Concomitant]
  13. SYNTHROID [Concomitant]
  14. NEXIUM [Concomitant]
  15. QUININE SULFATE [Concomitant]
  16. MAGNESIUM OXIDE [Concomitant]
  17. COUMADIN [Concomitant]
  18. FOSTEUM [Concomitant]
  19. NASONEX [Concomitant]
  20. MULTIPLE VITAMINS [Concomitant]

REACTIONS (1)
  - ANOSMIA [None]
